FAERS Safety Report 10484406 (Version 4)
Quarter: 2015Q2

REPORT INFORMATION
  Report Type: Spontaneous
  Country: US (occurrence: US)
  Receive Date: 20140930
  Receipt Date: 20150511
  Transmission Date: 20150821
  Serious: No
  Sender: FDA-Public Use
  Company Number: US-PFIZER INC-2014267786

PATIENT
  Age: 51 Year
  Sex: Female

DRUGS (19)
  1. CALCIUM [Concomitant]
     Active Substance: CALCIUM
     Dosage: UNK
     Dates: end: 20150301
  2. IRON [Concomitant]
     Active Substance: IRON
     Dosage: 25 MG, 1X/DAY VEGETARIAN SUPPLEMENT
  3. PRILOSEC [Concomitant]
     Active Substance: OMEPRAZOLE MAGNESIUM
     Dosage: 20 MG, 1X/DAY
  4. ESTRING [Suspect]
     Active Substance: ESTRADIOL
     Indication: VULVOVAGINAL DRYNESS
     Dosage: UNK
     Route: 067
  5. EXEMESTANE. [Concomitant]
     Active Substance: EXEMESTANE
     Indication: BREAST CANCER
     Dosage: 25 MG, UNK
     Dates: start: 201402
  6. VITAMIN D [Concomitant]
     Active Substance: CHOLECALCIFEROL
     Dosage: 4000 MG, DAILY
  7. COENZYME Q10 [Concomitant]
     Active Substance: UBIDECARENONE
     Dosage: 200 MG, 2X/DAY
  8. NADOLOL. [Concomitant]
     Active Substance: NADOLOL
     Dosage: 40 MG/DAY
  9. PROBIOTICS [Concomitant]
     Active Substance: PROBIOTICS NOS
     Dosage: 1 DF, DAILY (1/DAY)
  10. ESTRING [Suspect]
     Active Substance: ESTRADIOL
     Indication: HORMONE THERAPY
  11. ASPIRIN. [Concomitant]
     Active Substance: ASPIRIN
     Dosage: 342 MG, EVERY OTHER DAY
  12. METFORMIN HCL [Concomitant]
     Active Substance: METFORMIN HYDROCHLORIDE
     Indication: OFF LABEL USE
     Dosage: 250 MG/DAY
  13. PRILOSEC [Concomitant]
     Active Substance: OMEPRAZOLE MAGNESIUM
     Dosage: UNK (EVERY OTHER DAY)
  14. ESTRING [Suspect]
     Active Substance: ESTRADIOL
     Indication: PUBIC PAIN
     Dosage: 2 MG, EVERY 3 MONTHS
     Route: 067
     Dates: start: 20111214
  15. NORVASC [Concomitant]
     Active Substance: AMLODIPINE BESYLATE
     Dosage: 5MG/DAILY
     Route: 048
  16. ALAVERT ALLERGY [Concomitant]
     Active Substance: LORATADINE
     Dosage: 10 MG ONLY AS NEEDED ^RARE^
  17. ESTRING [Suspect]
     Active Substance: ESTRADIOL
     Indication: BONE DISORDER
     Dosage: UNK (1 RING/3 MONTHS)
     Route: 067
     Dates: start: 20131127
  18. VITAMIN D [Concomitant]
     Active Substance: CHOLECALCIFEROL
     Dosage: 4000^MG^/DAY
  19. COENZYME Q10 [Concomitant]
     Active Substance: UBIDECARENONE
     Dosage: 200 MG, DAILY

REACTIONS (5)
  - Bladder discomfort [Not Recovered/Not Resolved]
  - Vulvovaginal discomfort [Not Recovered/Not Resolved]
  - Product quality issue [Not Recovered/Not Resolved]
  - Drug ineffective [Not Recovered/Not Resolved]
  - Vulvovaginal pain [Not Recovered/Not Resolved]
